FAERS Safety Report 24971672 (Version 4)
Quarter: 2025Q2

REPORT INFORMATION
  Report Type: Spontaneous
  Country: PR (occurrence: PR)
  Receive Date: 20250214
  Receipt Date: 20250402
  Transmission Date: 20250716
  Serious: No
  Sender: PFIZER
  Company Number: PR-PFIZER INC-202500033188

PATIENT
  Age: 74 Year
  Sex: Female

DRUGS (3)
  1. IBRANCE [Suspect]
     Active Substance: PALBOCICLIB
     Route: 048
     Dates: start: 20230228, end: 202409
  2. LOSARTAN [Concomitant]
     Active Substance: LOSARTAN
  3. LEXIVA [Concomitant]
     Active Substance: FOSAMPRENAVIR CALCIUM

REACTIONS (5)
  - Oral pain [Not Recovered/Not Resolved]
  - Decreased appetite [Unknown]
  - Micturition urgency [Not Recovered/Not Resolved]
  - Condition aggravated [Not Recovered/Not Resolved]
  - Dysuria [Unknown]

NARRATIVE: CASE EVENT DATE: 20250127
